FAERS Safety Report 9242156 (Version 1)
Quarter: 2013Q2

REPORT INFORMATION
  Report Type: Spontaneous
  Country: US (occurrence: US)
  Receive Date: 20130419
  Receipt Date: 20130419
  Transmission Date: 20140414
  Serious: No
  Sender: FDA-Public Use
  Company Number: US-PFIZER INC-2013120554

PATIENT
  Age: 58 Year
  Sex: Female
  Weight: 78.46 kg

DRUGS (1)
  1. SUTENT [Suspect]
     Dosage: 37.5 MG, 1X/DAY
     Dates: start: 20130325

REACTIONS (1)
  - Tenderness [Unknown]
